FAERS Safety Report 25625649 (Version 2)
Quarter: 2025Q3

REPORT INFORMATION
  Report Type: Spontaneous
  Country: US (occurrence: US)
  Receive Date: 20250731
  Receipt Date: 20250808
  Transmission Date: 20251020
  Serious: Yes (Other)
  Sender: AUROBINDO
  Company Number: US-MLMSERVICE-20250715-PI577577-00271-1

PATIENT
  Age: 83 Year
  Sex: Female

DRUGS (1)
  1. PREDNISONE [Suspect]
     Active Substance: PREDNISONE
     Indication: Immune-mediated pancreatitis
     Dosage: HIGH-DOSE, 40 MG DAILY ? 8 WK, THEN TAPER
     Route: 065

REACTIONS (1)
  - Hyperglycaemia [Unknown]
